FAERS Safety Report 7387090-1 (Version None)
Quarter: 2011Q1

REPORT INFORMATION
  Report Type: 
  Country: None (occurrence: None)
  Receive Date: 20110331
  Receipt Date: 20110325
  Transmission Date: 20110831
  Serious: Yes (Hospitalization)
  Sender: FDA-Public Use
  Company Number: US-ELI_LILLY_AND_COMPANY-US201103007457

PATIENT
  Age: 80 Year
  Sex: Female
  Weight: 63.492 kg

DRUGS (16)
  1. HYDROCHLOROTHIAZIDE [Concomitant]
  2. DILAUDID [Concomitant]
  3. GLIPIZIDE [Concomitant]
  4. XALATAN [Concomitant]
  5. LACTULOSE [Concomitant]
  6. ENALAPRIL MALEATE [Concomitant]
  7. FENTANYL [Concomitant]
  8. FLUOROURACIL [Suspect]
     Indication: PANCREATIC CARCINOMA
  9. OTHER PHARMA COMPANY INV DRUG [Suspect]
     Indication: PULMONARY EMBOLISM
     Dosage: 12500 IU, UNK
     Route: 058
     Dates: start: 20100414, end: 20100425
  10. GEMCITABINE HYDROCHLORIDE [Suspect]
     Indication: PANCREATIC CARCINOMA
     Dosage: UNK, OTHER
  11. FOLINIC ACID [Suspect]
     Indication: PANCREATIC CARCINOMA
  12. OXALIPLATIN [Suspect]
     Indication: PANCREATIC CARCINOMA
  13. DULCOLAX [Concomitant]
  14. OTHER PHARMA COMPANY INV DRUG [Suspect]
     Dosage: 10000 IU, UNK
     Dates: start: 20100427
  15. OXYBUTYNIN [Concomitant]
  16. MEGACE [Concomitant]

REACTIONS (25)
  - DEHYDRATION [None]
  - BLOOD ALBUMIN DECREASED [None]
  - WHITE BLOOD CELL COUNT DECREASED [None]
  - RED CELL DISTRIBUTION WIDTH INCREASED [None]
  - NEOPLASM MALIGNANT [None]
  - BLOOD GLUCOSE INCREASED [None]
  - PANCREATIC CARCINOMA [None]
  - HYPOPHAGIA [None]
  - PROTEIN TOTAL DECREASED [None]
  - TOXICITY TO VARIOUS AGENTS [None]
  - RENAL FAILURE [None]
  - PULMONARY EMBOLISM [None]
  - MEAN PLATELET VOLUME DECREASED [None]
  - NEUTROPHIL PERCENTAGE DECREASED [None]
  - WEIGHT DECREASED [None]
  - RED BLOOD CELL COUNT DECREASED [None]
  - LYMPHOCYTE PERCENTAGE DECREASED [None]
  - MONOCYTE PERCENTAGE INCREASED [None]
  - HYPOVOLAEMIA [None]
  - HYPONATRAEMIA [None]
  - ALANINE AMINOTRANSFERASE INCREASED [None]
  - BLOOD CALCIUM DECREASED [None]
  - NAUSEA [None]
  - HAEMOGLOBIN DECREASED [None]
  - ASPARTATE AMINOTRANSFERASE INCREASED [None]
